FAERS Safety Report 16657167 (Version 4)
Quarter: 2019Q3

REPORT INFORMATION
  Report Type: Spontaneous
  Country: US (occurrence: US)
  Receive Date: 20190801
  Receipt Date: 20190910
  Transmission Date: 20191004
  Serious: No
  Sender: FDA-Public Use
  Company Number: US-PFIZER INC-2019326577

PATIENT
  Age: 76 Year
  Sex: Female
  Weight: 77 kg

DRUGS (2)
  1. IBRANCE [Suspect]
     Active Substance: PALBOCICLIB
     Dosage: 75 MG, CYCLIC (75 MG 1 PER DAY 3 WEEKS ON 1 WEEK OFF)
     Dates: start: 2019
  2. IBRANCE [Suspect]
     Active Substance: PALBOCICLIB
     Indication: NEOPLASM MALIGNANT
     Dosage: 75 MG, CYCLIC (DAILY FOR THREE WEEKS, THEN ONE WEEK OFF) (1 PER DAY 3 WKS ON 1 WK OFF)
     Dates: start: 201902, end: 2019

REACTIONS (5)
  - Genital infection bacterial [Not Recovered/Not Resolved]
  - Rash [Unknown]
  - Pruritus genital [Not Recovered/Not Resolved]
  - Condition aggravated [Not Recovered/Not Resolved]
  - Genital lesion [Not Recovered/Not Resolved]

NARRATIVE: CASE EVENT DATE: 2019
